FAERS Safety Report 25198905 (Version 1)
Quarter: 2025Q2

REPORT INFORMATION
  Report Type: Spontaneous
  Country: CN (occurrence: CN)
  Receive Date: 20250415
  Receipt Date: 20250415
  Transmission Date: 20250717
  Serious: Yes (Hospitalization)
  Sender: BRACCO
  Company Number: CN-BRACCO-2025CN02248

PATIENT
  Age: 50 Year
  Sex: Female

DRUGS (3)
  1. SULPHUR HEXAFLUORIDE [Suspect]
     Active Substance: SULFUR HEXAFLUORIDE
     Indication: Ultrasound thyroid
     Route: 042
     Dates: start: 20250401, end: 20250401
  2. SULPHUR HEXAFLUORIDE [Suspect]
     Active Substance: SULFUR HEXAFLUORIDE
     Indication: Ultrasound thyroid
     Route: 042
     Dates: start: 20250401, end: 20250401
  3. SULPHUR HEXAFLUORIDE [Suspect]
     Active Substance: SULFUR HEXAFLUORIDE
     Indication: Ultrasound thyroid
     Route: 042
     Dates: start: 20250401, end: 20250401

REACTIONS (2)
  - Off label use [Recovering/Resolving]
  - Facial discomfort [Recovering/Resolving]

NARRATIVE: CASE EVENT DATE: 20250401
